FAERS Safety Report 13749270 (Version 1)
Quarter: 2017Q3

REPORT INFORMATION
  Report Type: Spontaneous
  Country: US (occurrence: US)
  Receive Date: 20170713
  Receipt Date: 20170713
  Transmission Date: 20171127
  Serious: Yes (Other)
  Sender: FDA-Public Use
  Company Number: US-GLAXOSMITHKLINE-US2017GSK107795

PATIENT
  Age: 11 Year
  Sex: Male
  Weight: 40.8 kg

DRUGS (7)
  1. LAMICTAL [Suspect]
     Active Substance: LAMOTRIGINE
     Indication: AFFECTIVE DISORDER
     Dosage: ^A LOWER DOSE^
  2. LAMICTAL [Suspect]
     Active Substance: LAMOTRIGINE
     Indication: ILL-DEFINED DISORDER
  3. CLONIDINE. [Concomitant]
     Active Substance: CLONIDINE
     Indication: INSOMNIA
     Dosage: 0.1 MG, UNK
  4. CALCIUM [Concomitant]
     Active Substance: CALCIUM
     Indication: OSTEOPENIA
     Dosage: 500 MG, 1D
  5. CLONIDINE. [Concomitant]
     Active Substance: CLONIDINE
     Indication: IMPULSIVE BEHAVIOUR
  6. MELATONIN [Concomitant]
     Active Substance: MELATONIN
     Indication: INSOMNIA
     Dosage: 2.5 MG, 1D AT BEDTIME
  7. LAMICTAL [Suspect]
     Active Substance: LAMOTRIGINE
     Indication: IMPULSIVE BEHAVIOUR

REACTIONS (8)
  - Liver function test increased [Recovered/Resolved]
  - Rash [Recovered/Resolved]
  - Stevens-Johnson syndrome [Recovered/Resolved]
  - Cytogenetic abnormality [Not Recovered/Not Resolved]
  - Liver injury [Unknown]
  - Metabolic disorder [Not Recovered/Not Resolved]
  - Hepatic enzyme increased [Unknown]
  - Emergency care [Recovered/Resolved]
